FAERS Safety Report 6815840-9 (Version None)
Quarter: 2010Q3

REPORT INFORMATION
  Report Type: 
  Country: None (occurrence: None)
  Receive Date: 20100705
  Receipt Date: 20100624
  Transmission Date: 20110219
  Serious: Yes (Hospitalization)
  Sender: FDA-Public Use
  Company Number: US-BIOGENIDEC-2010BI021862

PATIENT
  Age: 66 Year
  Sex: Female

DRUGS (4)
  1. TYSABRI [Suspect]
     Indication: MULTIPLE SCLEROSIS
     Route: 042
     Dates: start: 20080311
  2. BACLOFEN [Concomitant]
     Indication: MUSCLE SPASTICITY
  3. BONIVA [Concomitant]
     Indication: OSTEOPOROSIS
  4. LOTREL [Concomitant]
     Indication: HYPERTENSION

REACTIONS (1)
  - FRACTURE TREATMENT [None]
